FAERS Safety Report 7463283-X (Version None)
Quarter: 2011Q2

REPORT INFORMATION
  Report Type: 
  Country: None (occurrence: None)
  Receive Date: 20110506
  Receipt Date: 20110429
  Transmission Date: 20111010
  Serious: Yes (Life-Threatening, Hospitalization)
  Sender: FDA-Public Use
  Company Number: US-CELGENEUS-163-21880-11050083

PATIENT
  Sex: Male
  Weight: 85.352 kg

DRUGS (13)
  1. ALLOPURINOL [Concomitant]
     Route: 065
  2. OXYCODONE [Concomitant]
     Route: 065
  3. DEXAMETHASONE [Concomitant]
     Route: 065
  4. ASPIRIN [Concomitant]
     Dosage: 81 MILLIGRAM
     Route: 065
  5. REVLIMID [Suspect]
     Dosage: 15 MILLIGRAM
     Route: 048
     Dates: start: 20110503
  6. COMPAZINE [Concomitant]
     Route: 065
  7. LISINOPRIL [Concomitant]
     Route: 065
  8. OMEPRAZOLE [Concomitant]
     Route: 065
  9. M.V.I. [Concomitant]
     Route: 065
  10. REVLIMID [Suspect]
     Indication: MULTIPLE MYELOMA
     Dosage: 25 MILLIGRAM
     Route: 048
     Dates: start: 20100618, end: 20100712
  11. VELCADE [Concomitant]
     Route: 065
  12. CALTRATE + D [Concomitant]
     Route: 065
  13. LORAZEPAM [Concomitant]
     Route: 065

REACTIONS (1)
  - MYOCARDIAL INFARCTION [None]
